FAERS Safety Report 5754933-4 (Version None)
Quarter: 2008Q2

REPORT INFORMATION
  Report Type: 
  Country: None (occurrence: None)
  Receive Date: 20080602
  Receipt Date: 20061003
  Transmission Date: 20081010
  Serious: No
  Sender: FDA-Public Use
  Company Number: JP-BAYER-200614246GDS

PATIENT
  Age: 51 Year
  Sex: Male

DRUGS (5)
  1. NIFEDIPINE [Suspect]
     Indication: INTENTIONAL OVERDOSE
     Route: 065
  2. IMIDAPRIL HYDROCHLORIDE [Suspect]
     Indication: INTENTIONAL OVERDOSE
     Route: 065
  3. DOXAZOSIN MESYLATE [Suspect]
     Indication: INTENTIONAL OVERDOSE
     Route: 065
  4. METHYLDOPA [Suspect]
     Indication: INTENTIONAL OVERDOSE
     Route: 065
  5. PSYCHOTROPIC AGENTS [Suspect]
     Indication: INTENTIONAL OVERDOSE
     Route: 065

REACTIONS (3)
  - HYPOTENSION [None]
  - SHOCK [None]
  - SUICIDE ATTEMPT [None]
